FAERS Safety Report 8865635 (Version 1)
Quarter: 2012Q4

REPORT INFORMATION
  Report Type: 
  Country: US (occurrence: US)
  Receive Date: 20121024
  Receipt Date: 20121024
  Transmission Date: 20130627
  Serious: No
  Sender: FDA-Public Use
  Company Number: US-AMGEN-USASP2012003956

PATIENT
  Age: 44 Year
  Sex: Male

DRUGS (1)
  1. ENBREL [Suspect]
     Indication: PSORIASIS
     Dosage: 50 mg, qwk
     Dates: end: 2010

REACTIONS (4)
  - Conjunctivitis [Unknown]
  - Pharyngitis streptococcal [Unknown]
  - Eye infection [Not Recovered/Not Resolved]
  - Psoriasis [Not Recovered/Not Resolved]
